FAERS Safety Report 4687617-4 (Version None)
Quarter: 2005Q2

REPORT INFORMATION
  Report Type: 
  Country: None (occurrence: None)
  Receive Date: 20050610
  Receipt Date: 20050525
  Transmission Date: 20051028
  Serious: Yes (Disabling)
  Sender: FDA-Public Use
  Company Number: PHEH2005US06014

PATIENT
  Sex: Female

DRUGS (4)
  1. VIVELLE-DOT [Suspect]
     Indication: HYSTERECTOMY
     Dosage: ONE PATCH, TWICE WEEKLY
     Dates: start: 20031124
  2. PAXIL [Concomitant]
     Indication: DEPRESSION
  3. NEURONTIN [Concomitant]
     Indication: PAIN
  4. FLONASE [Concomitant]
     Indication: HYPERSENSITIVITY

REACTIONS (7)
  - CYSTITIS INTERSTITIAL [None]
  - ECONOMIC PROBLEM [None]
  - HOT FLUSH [None]
  - MALAISE [None]
  - NERVE INJURY [None]
  - PELVIC PAIN [None]
  - TREATMENT NONCOMPLIANCE [None]
